FAERS Safety Report 22398950 (Version 1)
Quarter: 2023Q2

REPORT INFORMATION
  Report Type: Spontaneous
  Country: KR (occurrence: KR)
  Receive Date: 20230602
  Receipt Date: 20230602
  Transmission Date: 20230722
  Serious: Yes (Hospitalization)
  Sender: FDA-Public Use
  Company Number: KR-ORGANON-O2305KOR003084

PATIENT
  Age: 77 Year
  Sex: Female
  Weight: 73 kg

DRUGS (6)
  1. COZAAR [Suspect]
     Active Substance: LOSARTAN POTASSIUM
     Indication: Angina pectoris
     Dosage: 25 MILLIGRAM, QD (1 DAY)
     Route: 048
     Dates: start: 20180203
  2. ASPIRIN\CLOPIDOGREL [Concomitant]
     Active Substance: ASPIRIN\CLOPIDOGREL
     Indication: Angina pectoris
     Dosage: QD (1 DAY)
     Route: 048
     Dates: start: 20180203
  3. ATORVASTATIN CALCIUM [Concomitant]
     Active Substance: ATORVASTATIN CALCIUM
     Indication: Angina pectoris
     Dosage: 20 MILLIGRAM, QD (1 DAY)
     Route: 048
     Dates: start: 20180203
  4. SPIRONOLACTONE [Concomitant]
     Active Substance: SPIRONOLACTONE
     Indication: Angina pectoris
     Dosage: 25 MILLIGRAM, Q12H (0.5 DAY)
     Route: 048
     Dates: start: 20180406
  5. TORSEMIDE [Concomitant]
     Active Substance: TORSEMIDE
     Indication: Angina pectoris
     Dosage: 35 MILLIGRAM, Q12H (0.5 DAY)
     Route: 048
     Dates: start: 20190223
  6. TRIMETAZIDINE DIHYDROCHLORIDE [Concomitant]
     Active Substance: TRIMETAZIDINE DIHYDROCHLORIDE
     Indication: Angina pectoris
     Dosage: 35 MILLIGRAM, Q12H (0.5 DAY)
     Route: 048
     Dates: start: 20180224

REACTIONS (1)
  - Cellulitis [Recovered/Resolved]

NARRATIVE: CASE EVENT DATE: 20190515
